FAERS Safety Report 16419899 (Version 1)
Quarter: 2019Q2

REPORT INFORMATION
  Report Type: Spontaneous
  Country: CN (occurrence: CN)
  Receive Date: 20190612
  Receipt Date: 20190612
  Transmission Date: 20190711
  Serious: Yes (Other)
  Sender: FDA-Public Use
  Company Number: CN-009507513-1906CHN001348

PATIENT
  Age: 55 Year
  Sex: Female

DRUGS (7)
  1. CYCLOSPORINE. [Suspect]
     Active Substance: CYCLOSPORINE
     Indication: IMMUNOMODULATORY THERAPY
     Dosage: 50 MILLIGRAM, TID
     Route: 048
     Dates: start: 20190301, end: 20190512
  2. INDOMETHACIN. [Concomitant]
     Active Substance: INDOMETHACIN
     Dosage: 0.3 TABLET IN THE MORNING, ONCE
     Dates: start: 20190511
  3. TIENAM [Suspect]
     Active Substance: CILASTATIN SODIUM\IMIPENEM
     Indication: ANTI-INFECTIVE THERAPY
     Dosage: 3 GRAM, TID (Q8H)
     Route: 042
     Dates: start: 20190508, end: 20190512
  4. PHENCYCLIDINE HYDROCHLORIDE [Concomitant]
     Active Substance: PHENCYCLIDINE HYDROCHLORIDE
     Dosage: UNK
  5. TADIN [Concomitant]
     Dosage: UNK
     Dates: end: 20190508
  6. CASPOFUNGIN ACETATE. [Concomitant]
     Active Substance: CASPOFUNGIN ACETATE
     Dosage: UNK
     Dates: start: 20190508
  7. VANCOMYCIN [Concomitant]
     Active Substance: VANCOMYCIN
     Dosage: 1 GRAM
     Dates: start: 20190511

REACTIONS (6)
  - Pain [Not Recovered/Not Resolved]
  - Brain oedema [Not Recovered/Not Resolved]
  - Seizure [Not Recovered/Not Resolved]
  - Brain herniation [Not Recovered/Not Resolved]
  - Hypoaesthesia [Not Recovered/Not Resolved]
  - Altered state of consciousness [Not Recovered/Not Resolved]

NARRATIVE: CASE EVENT DATE: 20190511
